FAERS Safety Report 7683450-X (Version None)
Quarter: 2011Q3

REPORT INFORMATION
  Report Type: 
  Country: None (occurrence: None)
  Receive Date: 20110815
  Receipt Date: 20110805
  Transmission Date: 20111222
  Serious: Yes (Hospitalization)
  Sender: FDA-Public Use
  Company Number: PHHY2011GB70858

PATIENT
  Age: 78 Year
  Sex: Female

DRUGS (3)
  1. ACETAMINOPHEN AND CODEINE PHOSPHATE [Concomitant]
  2. SIMVASTATIN [Concomitant]
  3. ALENDRONIC ACID [Suspect]
     Route: 048
     Dates: start: 20110301

REACTIONS (2)
  - FEMUR FRACTURE [None]
  - STRESS FRACTURE [None]
